FAERS Safety Report 10177583 (Version 4)
Quarter: 2014Q2

REPORT INFORMATION
  Report Type: Spontaneous
  Country: CA (occurrence: CA)
  Receive Date: 20140516
  Receipt Date: 20140619
  Transmission Date: 20141212
  Serious: Yes (Hospitalization)
  Sender: FDA-Public Use
  Company Number: CA-BAXTER-2014BAX022455

PATIENT
  Age: 77 Year
  Sex: Male

DRUGS (2)
  1. EXTRANEAL [Suspect]
     Indication: RENAL FAILURE
     Route: 033
  2. EXTRANEAL [Suspect]
     Route: 033
     Dates: start: 20140523

REACTIONS (2)
  - Peritoneal disorder [Recovered/Resolved]
  - Peritoneal dialysis complication [Recovered/Resolved]
